FAERS Safety Report 19741898 (Version 1)
Quarter: 2021Q3

REPORT INFORMATION
  Report Type: Other
  Country: CA (occurrence: CA)
  Receive Date: 20210824
  Receipt Date: 20210824
  Transmission Date: 20211014
  Serious: No
  Sender: FDA-Public Use
  Company Number: CA-TOLMAR, INC.-21CA028838

PATIENT
  Age: 79 Year
  Sex: Male

DRUGS (2)
  1. CASODEX [Concomitant]
     Active Substance: BICALUTAMIDE
     Indication: PRODUCT USED FOR UNKNOWN INDICATION
  2. ELIGARD [Suspect]
     Active Substance: LEUPROLIDE ACETATE
     Indication: PROSTATE CANCER
     Dosage: 30 MILLIGRAM, Q 4 MONTH
     Route: 058
     Dates: start: 20210713

REACTIONS (5)
  - Mouth swelling [Unknown]
  - Hypersensitivity [Unknown]
  - Diarrhoea [Unknown]
  - Injection site pain [Recovered/Resolved]
  - Alcohol abuse [Unknown]

NARRATIVE: CASE EVENT DATE: 20210713
